FAERS Safety Report 9318837 (Version 3)
Quarter: 2013Q3

REPORT INFORMATION
  Report Type: Spontaneous
  Country: CA (occurrence: None)
  Receive Date: 20130520
  Receipt Date: 20130803
  Transmission Date: 20140515
  Serious: Yes (Other)
  Sender: FDA-Public Use
  Company Number: 2013035979

PATIENT
  Age: 56 Year
  Sex: Female

DRUGS (1)
  1. PRIVIGEN [Suspect]
     Indication: MYASTHENIA GRAVIS
     Dosage: 1HR 30 MTS.
     Route: 042
     Dates: start: 20130423, end: 20130423

REACTIONS (4)
  - Stomatococcal infection [None]
  - Blood pressure increased [None]
  - Chills [None]
  - Stomatococcal infection [None]
